FAERS Safety Report 7715579-1 (Version None)
Quarter: 2011Q3

REPORT INFORMATION
  Report Type: 
  Country: None (occurrence: None)
  Receive Date: 20110829
  Receipt Date: 20110817
  Transmission Date: 20111222
  Serious: Yes (Other)
  Sender: FDA-Public Use
  Company Number: US-AMGEN-USASP2011035136

PATIENT
  Age: 71 Year
  Sex: Female

DRUGS (1)
  1. ENBREL [Suspect]
     Indication: RHEUMATOID ARTHRITIS
     Dosage: 50 MG, QWK
     Dates: start: 20110426

REACTIONS (8)
  - GOUT [None]
  - CHROMATURIA [None]
  - DEPRESSION [None]
  - HOT FLUSH [None]
  - DYSURIA [None]
  - CONTUSION [None]
  - ROTATOR CUFF SYNDROME [None]
  - CHEST PAIN [None]
